FAERS Safety Report 8919178 (Version 3)
Quarter: 2016Q4

REPORT INFORMATION
  Report Type: Spontaneous
  Country: JP (occurrence: JP)
  Receive Date: 20121121
  Receipt Date: 20161214
  Transmission Date: 20170207
  Serious: Yes (Death)
  Sender: FDA-Public Use
  Company Number: JP-JNJFOC-20121101476

PATIENT
  Age: 9 Year
  Sex: Male
  Weight: 50 kg

DRUGS (14)
  1. MEILAX [Concomitant]
     Active Substance: ETHYL LOFLAZEPATE
     Indication: ANXIETY
     Route: 065
     Dates: start: 20120810, end: 20120914
  2. JZOLOFT [Suspect]
     Active Substance: SERTRALINE HYDROCHLORIDE
     Indication: PRODUCT USED FOR UNKNOWN INDICATION
     Route: 048
     Dates: start: 20120914, end: 20121016
  3. ORAP [Suspect]
     Active Substance: PIMOZIDE
     Indication: HYPERPHAGIA
     Route: 048
     Dates: start: 20120413, end: 20120518
  4. ORAP [Suspect]
     Active Substance: PIMOZIDE
     Indication: HYPERPHAGIA
     Route: 048
     Dates: start: 20120518
  5. ABILIFY [Suspect]
     Active Substance: ARIPIPRAZOLE
     Indication: HYPERAESTHESIA
     Route: 048
     Dates: start: 20120305
  6. ABILIFY [Suspect]
     Active Substance: ARIPIPRAZOLE
     Indication: SEDATION
     Route: 048
     Dates: start: 20100519, end: 20110930
  7. MEILAX [Concomitant]
     Active Substance: ETHYL LOFLAZEPATE
     Indication: PRODUCT USED FOR UNKNOWN INDICATION
     Route: 065
     Dates: start: 20120810, end: 20120914
  8. JZOLOFT [Suspect]
     Active Substance: SERTRALINE HYDROCHLORIDE
     Indication: ANXIETY
     Route: 048
     Dates: start: 20120914, end: 20121016
  9. JAPANESE ENCEPHALITIS VIRUS VACCINE INACTIVATED [Suspect]
     Active Substance: JAPANESE ENCEPHALITIS VIRUS STRAIN NAKAYAMA-NIH ANTIGEN (FORMALDEHYDE INACTIVATED)
     Indication: IMMUNISATION
     Route: 065
     Dates: start: 20121017, end: 20121017
  10. ORAP [Suspect]
     Active Substance: PIMOZIDE
     Indication: SEDATION
     Route: 048
     Dates: start: 20120413, end: 20120518
  11. ABILIFY [Suspect]
     Active Substance: ARIPIPRAZOLE
     Indication: HYPERAESTHESIA
     Route: 048
     Dates: start: 20100519, end: 20110930
  12. ORAP [Suspect]
     Active Substance: PIMOZIDE
     Indication: SEDATION
     Route: 048
     Dates: start: 20120518
  13. ABILIFY [Suspect]
     Active Substance: ARIPIPRAZOLE
     Indication: SEDATION
     Route: 048
     Dates: start: 20120305
  14. ZYPREXA [Suspect]
     Active Substance: OLANZAPINE
     Indication: PRODUCT USED FOR UNKNOWN INDICATION
     Route: 065
     Dates: start: 20110404, end: 20120305

REACTIONS (3)
  - Anxiety [Unknown]
  - Incontinence [Unknown]
  - Cardio-respiratory arrest [Fatal]

NARRATIVE: CASE EVENT DATE: 201204
